FAERS Safety Report 17021648 (Version 2)
Quarter: 2020Q1

REPORT INFORMATION
  Report Type: Report from Study
  Country: CA (occurrence: CA)
  Receive Date: 20191112
  Receipt Date: 20200214
  Transmission Date: 20200409
  Serious: Yes (Death)
  Sender: FDA-Public Use
  Company Number: CA-TAIHO ONCOLOGY  INC-EU-2019-03681

PATIENT
  Sex: Female
  Weight: 48 kg

DRUGS (17)
  1. VIT B 12 [Concomitant]
     Active Substance: CYANOCOBALAMIN
     Route: 048
  2. TINZAPARIN [Concomitant]
     Active Substance: TINZAPARIN
     Route: 058
  3. LONSURF [Suspect]
     Active Substance: TIPIRACIL HYDROCHLORIDE\TRIFLURIDINE
     Indication: COLORECTAL CANCER METASTATIC
     Dosage: CURRENT CYCLE 1
     Route: 048
     Dates: start: 20190909
  4. LACTULOSE. [Concomitant]
     Active Substance: LACTULOSE
     Route: 048
  5. ATROVENT [Concomitant]
     Active Substance: IPRATROPIUM BROMIDE
  6. HYDROCODONE [Concomitant]
     Active Substance: HYDROCODONE
  7. BREO ELLIPTA [Concomitant]
     Active Substance: FLUTICASONE FUROATE\VILANTEROL TRIFENATATE
  8. AMLODIPINE [Concomitant]
     Active Substance: AMLODIPINE BESYLATE
  9. DENOSUMAB [Concomitant]
     Active Substance: DENOSUMAB
     Route: 058
  10. CALCIFEROL+D [Concomitant]
  11. HYDROMORPH CONTIN [Concomitant]
     Active Substance: HYDROMORPHONE
  12. VITAMIN C [Concomitant]
     Active Substance: ASCORBIC ACID
     Route: 048
  13. VIT D [Concomitant]
     Active Substance: VITAMIN D NOS
  14. GABAPENTIN. [Concomitant]
     Active Substance: GABAPENTIN
  15. HYDROMORPHONE [Concomitant]
     Active Substance: HYDROMORPHONE
     Route: 048
  16. PANTOLOC [Concomitant]
     Active Substance: PANTOPRAZOLE SODIUM
  17. SENOKOT [Concomitant]
     Active Substance: SENNOSIDES

REACTIONS (1)
  - Disease progression [Fatal]
